FAERS Safety Report 4896394-3 (Version None)
Quarter: 2006Q1

REPORT INFORMATION
  Report Type: 
  Country: None (occurrence: None)
  Receive Date: 20060131
  Receipt Date: 20060119
  Transmission Date: 20060701
  Serious: Yes (Disabling)
  Sender: FDA-Public Use
  Company Number: GB-BRISTOL-MYERS SQUIBB COMPANY-13259650

PATIENT
  Age: 55 Year
  Sex: Male

DRUGS (5)
  1. SINEMET [Suspect]
     Indication: PARKINSON'S DISEASE
     Route: 048
     Dates: start: 20020701, end: 20040801
  2. PRAMIPEXOLE HCL [Suspect]
     Indication: PARKINSON'S DISEASE
     Route: 048
     Dates: start: 20020807, end: 20040807
  3. OXPRENOLOL HCL [Concomitant]
     Dates: end: 20021201
  4. PRIMIDONE [Concomitant]
     Dates: start: 20020618, end: 20020801
  5. VIAGRA [Concomitant]
     Indication: ERECTILE DYSFUNCTION
     Dates: start: 20001214

REACTIONS (1)
  - PATHOLOGICAL GAMBLING [None]
